FAERS Safety Report 10005517 (Version 2)
Quarter: 2014Q1

REPORT INFORMATION
  Report Type: Spontaneous
  Country: SE (occurrence: SE)
  Receive Date: 20140313
  Receipt Date: 20140313
  Transmission Date: 20141002
  Serious: Yes (Other)
  Sender: FDA-Public Use
  Company Number: SE-AMGEN-SWESP2014014617

PATIENT
  Age: 77 Year
  Sex: Female

DRUGS (2)
  1. VECTIBIX [Suspect]
     Indication: COLON CANCER
     Dosage: 4 MG/KG, EVERY SECOND WEEK
     Route: 042
     Dates: start: 20130529
  2. VECTIBIX [Suspect]
     Indication: METASTASES TO LIVER

REACTIONS (3)
  - Spinal cord compression [Unknown]
  - Back pain [Recovered/Resolved]
  - Conjunctivitis [Unknown]
